FAERS Safety Report 6639296-4 (Version None)
Quarter: 2010Q1

REPORT INFORMATION
  Report Type: 
  Country: None (occurrence: None)
  Receive Date: 20100315
  Receipt Date: 20100225
  Transmission Date: 20100710
  Serious: Yes (Death)
  Sender: FDA-Public Use
  Company Number: 2010VX000024

PATIENT
  Age: 54 Year
  Sex: Female

DRUGS (10)
  1. DIASTAT [Suspect]
     Indication: DRUG USE FOR UNKNOWN INDICATION
  2. ESCITALOPRAM [Suspect]
     Indication: DRUG USE FOR UNKNOWN INDICATION
  3. METOPROLOL [Suspect]
     Indication: DRUG USE FOR UNKNOWN INDICATION
  4. CARISOPRODOL [Suspect]
     Indication: DRUG USE FOR UNKNOWN INDICATION
  5. CLOPIDOGREL [Suspect]
     Indication: DRUG USE FOR UNKNOWN INDICATION
  6. CANDESARTAN CILEXETIL [Concomitant]
  7. VERAPAMIL HYDROCHLORIDE [Concomitant]
  8. CONJUGATED ESTROGEN/MEDROXYPROGESTERONE ACETATE [Concomitant]
  9. ZOLPIDEM TARTRATE [Concomitant]
  10. CETIRIZINE HYDROCHLORIDE [Concomitant]

REACTIONS (10)
  - ATRIOVENTRICULAR BLOCK COMPLETE [None]
  - BLOOD PRESSURE DECREASED [None]
  - CATHETER SITE HAEMORRHAGE [None]
  - COMPLETED SUICIDE [None]
  - ELECTROCARDIOGRAM QRS COMPLEX PROLONGED [None]
  - PERITONEAL HAEMORRHAGE [None]
  - POISONING [None]
  - SINUS BRADYCARDIA [None]
  - URINE OUTPUT DECREASED [None]
  - VOMITING [None]
